FAERS Safety Report 18761402 (Version 2)
Quarter: 2021Q1

REPORT INFORMATION
  Report Type: Spontaneous
  Country: US (occurrence: US)
  Receive Date: 20210120
  Receipt Date: 20210206
  Transmission Date: 20210419
  Serious: No
  Sender: FDA-Public Use
  Company Number: US-009507513-2101USA004267

PATIENT
  Age: 67 Year
  Sex: Female
  Weight: 57.14 kg

DRUGS (5)
  1. PROPRANOLOL [Concomitant]
     Active Substance: PROPRANOLOL HYDROCHLORIDE
     Indication: ANXIETY
     Dosage: 40 MILLIGRAM, QD
     Route: 048
     Dates: start: 2018
  2. ALPRAZOLAM. [Concomitant]
     Active Substance: ALPRAZOLAM
     Indication: INSOMNIA
     Dosage: 0.25 MILLIGRAM
     Route: 048
     Dates: start: 2017
  3. RANITIDINE. [Concomitant]
     Active Substance: RANITIDINE
     Indication: GASTROOESOPHAGEAL REFLUX DISEASE
     Dosage: 150 MILLIGRAM, QD
     Route: 048
     Dates: start: 2018
  4. FOSAMAX [Suspect]
     Active Substance: ALENDRONATE SODIUM
     Indication: OSTEOPOROSIS PROPHYLAXIS
     Dosage: ONE TABLET 70 MILLIGRAM,ONCE DAILY
     Route: 048
     Dates: start: 20200909, end: 20200910
  5. BENTYL [Concomitant]
     Active Substance: DICYCLOMINE HYDROCHLORIDE
     Indication: IRRITABLE BOWEL SYNDROME
     Dosage: 20 MILLIGRAM
     Route: 048
     Dates: start: 2019

REACTIONS (3)
  - Anxiety [Recovering/Resolving]
  - Inappropriate schedule of product administration [Unknown]
  - Alopecia [Recovering/Resolving]

NARRATIVE: CASE EVENT DATE: 20200909
